FAERS Safety Report 8251792-5 (Version None)
Quarter: 2012Q2

REPORT INFORMATION
  Report Type: 
  Country: None (occurrence: None)
  Receive Date: 20120402
  Receipt Date: 20120321
  Transmission Date: 20120825
  Serious: Yes (Other)
  Sender: FDA-Public Use
  Company Number: GB-TEVA-330678ISR

PATIENT
  Sex: Male

DRUGS (1)
  1. DONEPEZIL HCL [Suspect]

REACTIONS (1)
  - BUNDLE BRANCH BLOCK [None]
